FAERS Safety Report 24297988 (Version 1)
Quarter: 2024Q3

REPORT INFORMATION
  Report Type: Spontaneous
  Country: EG (occurrence: EG)
  Receive Date: 20240909
  Receipt Date: 20240909
  Transmission Date: 20241017
  Serious: Yes (Life-Threatening, Hospitalization)
  Sender: PFIZER
  Company Number: EG-PFIZER INC-PV202400116008

PATIENT

DRUGS (1)
  1. IRINOTECAN HYDROCHLORIDE [Suspect]
     Active Substance: IRINOTECAN HYDROCHLORIDE
     Dosage: UNK

REACTIONS (1)
  - Diarrhoea [Unknown]
